FAERS Safety Report 21925418 (Version 1)
Quarter: 2023Q1

REPORT INFORMATION
  Report Type: Spontaneous
  Country: US (occurrence: None)
  Receive Date: 20230127
  Receipt Date: 20230127
  Transmission Date: 20230417
  Serious: Yes (Hospitalization)
  Sender: FDA-Public Use
  Company Number: None

PATIENT
  Sex: Female

DRUGS (1)
  1. LUMAKRAS [Suspect]
     Active Substance: SOTORASIB
     Indication: Lung neoplasm malignant
     Dosage: 960 MG DAILY PO
     Route: 048
     Dates: start: 20221109

REACTIONS (5)
  - Pneumonia [None]
  - Dehydration [None]
  - Nausea [None]
  - Vomiting [None]
  - Drug ineffective [None]
